FAERS Safety Report 17677991 (Version 1)
Quarter: 2020Q2

REPORT INFORMATION
  Report Type: Report from Study
  Country: None (occurrence: BR)
  Receive Date: 20200416
  Receipt Date: 20200416
  Transmission Date: 20200714
  Serious: Yes (Other)
  Sender: FDA-Public Use
  Company Number: BR-ABBVIE-20K-020-3366404-00

PATIENT
  Sex: Female

DRUGS (1)
  1. HUMIRA [Suspect]
     Active Substance: ADALIMUMAB
     Indication: RHEUMATOID ARTHRITIS
     Dosage: AS NEEDED
     Route: 058
     Dates: start: 20180928

REACTIONS (4)
  - Post procedural infection [Unknown]
  - Intentional product misuse [Unknown]
  - Hysterectomy [Unknown]
  - Bladder repair [Unknown]
